FAERS Safety Report 5984211-X (Version None)
Quarter: 2008Q4

REPORT INFORMATION
  Report Type: 
  Country: None (occurrence: None)
  Receive Date: 20081208
  Receipt Date: 20080925
  Transmission Date: 20090506
  Serious: Yes (Hospitalization)
  Sender: FDA-Public Use
  Company Number: US-AMGEN-QUU305901

PATIENT
  Age: 61 Year
  Sex: Male

DRUGS (7)
  1. ENBREL [Suspect]
     Indication: PSORIASIS
     Route: 058
     Dates: start: 20080803, end: 20080818
  2. HYDROCHLOROTHIAZIDE [Concomitant]
  3. ENALAPRIL MALEATE [Concomitant]
  4. PROPRANOLOL [Concomitant]
  5. ZOCOR [Concomitant]
  6. LORATADINE [Concomitant]
  7. VITAMIN E [Concomitant]

REACTIONS (3)
  - HYPOTENSION [None]
  - MYOCARDIAL INFARCTION [None]
  - RESPIRATORY TRACT INFECTION [None]
